FAERS Safety Report 6739367-8 (Version None)
Quarter: 2010Q2

REPORT INFORMATION
  Report Type: 
  Country: None (occurrence: None)
  Receive Date: 20100521
  Receipt Date: 20100511
  Transmission Date: 20101027
  Serious: Yes (Hospitalization)
  Sender: FDA-Public Use
  Company Number: 1000013882

PATIENT
  Age: 86 Year
  Sex: Female

DRUGS (11)
  1. ESCITALOPRAM [Suspect]
     Dosage: 20 MG (10 MG, 2 IN 1 D), ORAL
     Route: 048
     Dates: start: 20080918, end: 20100308
  2. MEMANTINE HCL [Suspect]
     Dosage: 20 MG (10 MG, 2 IN 1 D), ORAL
     Route: 048
     Dates: start: 20080918, end: 20100311
  3. MEMANTINE HCL [Suspect]
     Dosage: 10 MG (10 MG, 1 IN 1 D), ORAL
     Route: 048
     Dates: start: 20100312
  4. EQUANIL [Suspect]
     Dosage: 250 MG (250 MG, 1 IN 1 D), ORAL
     Route: 048
     Dates: start: 20071115, end: 20100308
  5. KARDEGIC [Concomitant]
  6. CORDARONE [Concomitant]
  7. ARICEPT [Concomitant]
  8. CARDENSIEL [Concomitant]
  9. NEXIUM [Concomitant]
  10. LASIX [Concomitant]
  11. STABLON [Concomitant]

REACTIONS (4)
  - CYTOLYTIC HEPATITIS [None]
  - JAUNDICE [None]
  - LEFT VENTRICULAR FAILURE [None]
  - URINARY TRACT INFECTION [None]
